FAERS Safety Report 11484058 (Version 1)
Quarter: 2015Q3

REPORT INFORMATION
  Report Type: Spontaneous
  Country: US (occurrence: None)
  Receive Date: 20150904
  Receipt Date: 20150904
  Transmission Date: 20151125
  Serious: Yes (Other)
  Sender: FDA-Public Use
  Company Number: 1000070049

PATIENT
  Age: 55 Year
  Sex: Female

DRUGS (6)
  1. ADDERALL (OBETROL /01345401/) (OBETROL /01345401) [Concomitant]
  2. ZOLPIDEM [Concomitant]
     Active Substance: ZOLPIDEM\ZOLPIDEM TARTRATE
  3. SAPHRIS [Suspect]
     Active Substance: ASENAPINE MALEATE
     Indication: BIPOLAR DISORDER
     Dosage: ONE TABLET ONCE DAILY (ONE TABLET ONCE DAILY), SUBLINGUAL
     Route: 060
     Dates: start: 201404
  4. DIZAEPAM (DIAZEPAM) (DIAZEPAM) [Concomitant]
  5. CITALOPRAM (CITALOPRAM HYDROBROMIDE) (CITALOPRAM HYDROBROMIDE) [Concomitant]
     Active Substance: CITALOPRAM HYDROBROMIDE
  6. BUSPIRONE (BUSPIRONE) (BUSPIRONE) [Concomitant]
     Active Substance: BUSPIRONE HYDROCHLORIDE

REACTIONS (5)
  - Fall [None]
  - Oedema [None]
  - Gait disturbance [None]
  - Weight increased [None]
  - Blood cholesterol increased [None]

NARRATIVE: CASE EVENT DATE: 2014
